FAERS Safety Report 7535829-4 (Version None)
Quarter: 2011Q2

REPORT INFORMATION
  Report Type: 
  Country: None (occurrence: None)
  Receive Date: 20110609
  Receipt Date: 20110527
  Transmission Date: 20111010
  Serious: Yes (Hospitalization, Other)
  Sender: FDA-Public Use
  Company Number: IE-AMGEN-IRLSP2011007954

PATIENT
  Age: 35 Year
  Sex: Female

DRUGS (10)
  1. EFFEXOR [Concomitant]
  2. ARCOXIA [Concomitant]
  3. MINOCYCLINE HCL [Concomitant]
  4. CALCICHEW [Concomitant]
  5. VECTIBIX [Suspect]
     Indication: COLORECTAL CANCER
     Dosage: 4 MG/KG, Q2WK
     Route: 042
     Dates: start: 20100514
  6. MINOCIN [Concomitant]
  7. METHADONE HCL [Concomitant]
  8. LANSOPRAZOLE [Concomitant]
  9. LYRICA [Concomitant]
  10. LEVOMEPROMAZINE MALEATE [Concomitant]

REACTIONS (6)
  - RASH [None]
  - CHAPPED LIPS [None]
  - PARAESTHESIA [None]
  - NAIL DISORDER [None]
  - PRURITUS [None]
  - BACK PAIN [None]
